FAERS Safety Report 5700062-5 (Version None)
Quarter: 2008Q2

REPORT INFORMATION
  Report Type: 
  Country: None (occurrence: None)
  Receive Date: 20080410
  Receipt Date: 20080401
  Transmission Date: 20081010
  Serious: Yes (Death, Hospitalization)
  Sender: FDA-Public Use
  Company Number: NL-ROCHE-552026

PATIENT
  Age: 68 Year
  Sex: Male

DRUGS (3)
  1. XELODA [Suspect]
     Dosage: INDICATION REPORTED AS PULMONES METASTASIZED RECTAL CARCINOMA
     Route: 065
     Dates: start: 20070914
  2. AVASTIN [Suspect]
     Dosage: FORM: INFUSION; INDICATION REPORTED AS PULMONES METASTASIZED RECTAL CARCINOMA
     Route: 065
     Dates: start: 20070914
  3. OXALIPLATIN [Suspect]
     Dosage: INDICATION REPORTED AS PULMONES METASTASIZED RECTAL CARCINOMA
     Route: 065
     Dates: start: 20070914

REACTIONS (4)
  - DIARRHOEA [None]
  - EMBOLISM [None]
  - HYPOTENSION [None]
  - PYREXIA [None]
